FAERS Safety Report 4603784-2 (Version None)
Quarter: 2005Q1

REPORT INFORMATION
  Report Type: 
  Country: None (occurrence: None)
  Receive Date: 20050310
  Receipt Date: 20050224
  Transmission Date: 20050727
  Serious: Yes (Hospitalization)
  Sender: FDA-Public Use
  Company Number: FR-MERCK-0502FRA00081

PATIENT
  Age: 69 Year
  Sex: Female
  Weight: 46 kg

DRUGS (4)
  1. CRIXIVAN [Suspect]
     Indication: HIV INFECTION
     Route: 048
     Dates: start: 19960701
  2. LAMIVUDINE AND ZIDOVUDINE [Concomitant]
     Indication: HIV INFECTION
     Route: 048
     Dates: start: 19990701
  3. RILMENIDINE PHOSPHATE [Concomitant]
     Indication: HYPERTENSION
     Route: 048
     Dates: start: 20040928
  4. PRAVASTATIN SODIUM [Concomitant]
     Indication: HYPERLIPIDAEMIA
     Route: 048
     Dates: start: 20001111

REACTIONS (3)
  - APTYALISM [None]
  - PARKINSON'S DISEASE [None]
  - XEROPHTHALMIA [None]
